FAERS Safety Report 7795178-6 (Version None)
Quarter: 2011Q4

REPORT INFORMATION
  Report Type: 
  Country: None (occurrence: None)
  Receive Date: 20111004
  Receipt Date: 20110929
  Transmission Date: 20120403
  Serious: Yes (Other)
  Sender: FDA-Public Use
  Company Number: US-TEVA-296997USA

PATIENT
  Sex: Female

DRUGS (1)
  1. CLARAVIS [Suspect]
     Dosage: 80 MILLIGRAM; BID MOST DAYS; QDAY ON OTHER DAYS
     Route: 048
     Dates: start: 20110401, end: 20110818

REACTIONS (1)
  - UNINTENDED PREGNANCY [None]
